FAERS Safety Report 5567741-4 (Version None)
Quarter: 2007Q4

REPORT INFORMATION
  Report Type: 
  Country: None (occurrence: None)
  Receive Date: 20071218
  Receipt Date: 20071207
  Transmission Date: 20080405
  Serious: Yes (Hospitalization)
  Sender: FDA-Public Use
  Company Number: 2007BI021834

PATIENT
  Age: 42 Year
  Sex: Female

DRUGS (3)
  1. NATALIZUMAB [Suspect]
     Indication: MULTIPLE SCLEROSIS
     Dosage: 300 MG;QM;IV
     Route: 042
     Dates: start: 20070911
  2. AVONEX [Concomitant]
  3. TYLENOL W/ CODEINE [Concomitant]

REACTIONS (4)
  - BRADYPHRENIA [None]
  - CONFUSIONAL STATE [None]
  - NAUSEA [None]
  - VISION BLURRED [None]
